FAERS Safety Report 16821692 (Version 1)
Quarter: 2019Q3

REPORT INFORMATION
  Report Type: Report from Study
  Country: JP (occurrence: JP)
  Receive Date: 20190918
  Receipt Date: 20190918
  Transmission Date: 20191005
  Serious: Yes (Hospitalization)
  Sender: FDA-Public Use
  Company Number: JP-ELI_LILLY_AND_COMPANY-JP201810007256

PATIENT
  Sex: Female

DRUGS (2)
  1. IXEKIZUMAB [Suspect]
     Active Substance: IXEKIZUMAB
     Indication: PSORIASIS
     Dosage: UNK
     Route: 058
     Dates: start: 20180329
  2. TIGASON                            /00530101/ [Concomitant]
     Active Substance: ETRETINATE

REACTIONS (12)
  - Pyrexia [Unknown]
  - Decreased appetite [Unknown]
  - Chest discomfort [Unknown]
  - Spinal fracture [Unknown]
  - Gastric ulcer [Unknown]
  - Skin erosion [Unknown]
  - Spinal compression fracture [Not Recovered/Not Resolved]
  - Cough [Not Recovered/Not Resolved]
  - Helicobacter infection [Unknown]
  - Oral mucosal eruption [Unknown]
  - Oropharyngeal pain [Unknown]
  - Throat irritation [Not Recovered/Not Resolved]

NARRATIVE: CASE EVENT DATE: 2018
